FAERS Safety Report 23608061 (Version 1)
Quarter: 2024Q1

REPORT INFORMATION
  Report Type: Report from Study
  Country: US (occurrence: None)
  Receive Date: 20240307
  Receipt Date: 20240307
  Transmission Date: 20240409
  Serious: Yes (Other)
  Sender: FDA-Public Use
  Company Number: 2024A050564

PATIENT
  Sex: Female
  Weight: 66.2 kg

DRUGS (1)
  1. CALQUENCE [Suspect]
     Active Substance: ACALABRUTINIB
     Indication: Lymphoid tissue hyperplasia
     Route: 048
     Dates: start: 202401

REACTIONS (3)
  - Systemic lupus erythematosus [Unknown]
  - Foot fracture [Unknown]
  - Influenza [Unknown]
